FAERS Safety Report 6416140-1 (Version None)
Quarter: 2009Q4

REPORT INFORMATION
  Report Type: 
  Country: None (occurrence: None)
  Receive Date: 20091023
  Receipt Date: 20091008
  Transmission Date: 20100525
  Serious: Yes (Other)
  Sender: FDA-Public Use
  Company Number: AUR-APL-2009-00957

PATIENT
  Sex: Female

DRUGS (2)
  1. LISINOPRIL [Suspect]
     Indication: HYPERTENSION
     Dosage: 40MG, DAILY
     Dates: start: 20090722
  2. HYDROCHLOROTHIAZIDE [Suspect]
     Indication: HYPERTENSION
     Dosage: 12.5MG, DAILY
     Dates: start: 20090722

REACTIONS (11)
  - COUGH [None]
  - EAR INFECTION [None]
  - EAR PAIN [None]
  - INTERVERTEBRAL DISC DEGENERATION [None]
  - MEDICAL DEVICE COMPLICATION [None]
  - NEURALGIA [None]
  - OSTEOARTHRITIS [None]
  - PNEUMONIA [None]
  - SINUSITIS [None]
  - SWELLING FACE [None]
  - TRIGEMINAL NEURALGIA [None]
